FAERS Safety Report 9069882 (Version 1)
Quarter: 2013Q1

REPORT INFORMATION
  Report Type: Report from Study
  Country: US (occurrence: US)
  Receive Date: 20130129
  Receipt Date: 20130129
  Transmission Date: 20140127
  Serious: No
  Sender: FDA-Public Use
  Company Number: US-ABBOTT-12P-163-0942495-00

PATIENT
  Age: 52 Year
  Sex: Female

DRUGS (11)
  1. HUMIRA 40 MG/0.8 ML PEN [Suspect]
     Indication: RHEUMATOID ARTHRITIS
     Dates: start: 20120416
  2. SIMVASTATIN [Concomitant]
     Indication: BLOOD CHOLESTEROL
     Dosage: 20MG EVERY DAY
  3. SIMVASTATIN [Concomitant]
  4. LOSARTAN [Concomitant]
     Indication: HYPERTENSION
     Dosage: 100-12.5MG EVERY DAY
  5. AMLODIPINE [Concomitant]
     Indication: BLOOD PRESSURE
     Dosage: 10MG EVERY DAY
  6. PLAQUENIL [Concomitant]
     Indication: RHEUMATOID ARTHRITIS
  7. METHOTREXATE [Concomitant]
     Indication: RHEUMATOID ARTHRITIS
     Dosage: 6 TABLETS ONE DAY EVERY WEEK
  8. CELEBREX [Concomitant]
     Indication: RHEUMATOID ARTHRITIS
  9. FOLIC ACID [Concomitant]
     Indication: RHEUMATOID ARTHRITIS
     Dosage: 1MG EVERY DAY
  10. LAMICTAL [Concomitant]
     Indication: BIPOLAR DISORDER
     Dosage: EVERY AM
  11. PROZAC [Concomitant]
     Indication: DIZZINESS

REACTIONS (10)
  - Fatigue [Not Recovered/Not Resolved]
  - Injection site oedema [Not Recovered/Not Resolved]
  - Injection site pain [Not Recovered/Not Resolved]
  - Injection site pain [Not Recovered/Not Resolved]
  - Pallor [Not Recovered/Not Resolved]
  - Feeling hot [Not Recovered/Not Resolved]
  - Erythema [Not Recovered/Not Resolved]
  - Burning sensation [Not Recovered/Not Resolved]
  - Injection site bruising [Not Recovered/Not Resolved]
  - Injection site nodule [Not Recovered/Not Resolved]
